FAERS Safety Report 7866840-1 (Version None)
Quarter: 2011Q4

REPORT INFORMATION
  Report Type: 
  Country: None (occurrence: None)
  Receive Date: 20111028
  Receipt Date: 20110831
  Transmission Date: 20120403
  Serious: No
  Sender: FDA-Public Use
  Company Number: US-GLAXOSMITHKLINE-A0943625A

PATIENT
  Age: 56 Year
  Sex: Female

DRUGS (2)
  1. ADVAIR DISKUS 100/50 [Suspect]
     Route: 065
     Dates: start: 20110312
  2. VENTOLIN [Suspect]
     Route: 065
     Dates: start: 20110312

REACTIONS (2)
  - MALAISE [None]
  - MULTIPLE ALLERGIES [None]
